FAERS Safety Report 18151281 (Version 1)
Quarter: 2020Q3

REPORT INFORMATION
  Report Type: Spontaneous
  Country: US (occurrence: US)
  Receive Date: 20200814
  Receipt Date: 20200814
  Transmission Date: 20201103
  Serious: No
  Sender: FDA-Public Use
  Company Number: None

PATIENT
  Age: 73 Year
  Sex: Female
  Weight: 48.6 kg

DRUGS (9)
  1. ALLEGRA 24 HOUR 10MG [Concomitant]
  2. ANASTROZOLE 1MG [Concomitant]
     Active Substance: ANASTROZOLE
  3. DICYCLOMINE [Concomitant]
     Active Substance: DICYCLOMINE HYDROCHLORIDE
  4. MORPHINE ER 30MG [Concomitant]
     Active Substance: MORPHINE SULFATE
  5. CAPECITABINE. [Suspect]
     Active Substance: CAPECITABINE
     Route: 048
     Dates: start: 20191213, end: 20200814
  6. HYDROCODONE/APAP 5/325 [Concomitant]
     Active Substance: ACETAMINOPHEN\HYDROCODONE
  7. SOMA 250MG [Concomitant]
  8. HERCEPTIN 440MG IV [Concomitant]
  9. LYRICA [Concomitant]
     Active Substance: PREGABALIN

REACTIONS (6)
  - Spinal cord compression [None]
  - Secretion discharge [None]
  - Tremor [None]
  - Feeling drunk [None]
  - Ankyloglossia congenital [None]
  - Asthenia [None]

NARRATIVE: CASE EVENT DATE: 20200814
